FAERS Safety Report 11628231 (Version 1)
Quarter: 2015Q4

REPORT INFORMATION
  Report Type: Spontaneous
  Country: GB (occurrence: GB)
  Receive Date: 20151014
  Receipt Date: 20151014
  Transmission Date: 20160304
  Serious: Yes (Other)
  Sender: FDA-Public Use
  Company Number: GB-WATSON-2015-21977

PATIENT
  Age: 68 Year
  Sex: Male
  Weight: 97 kg

DRUGS (3)
  1. SIMVASTATIN (UNKNOWN) [Suspect]
     Active Substance: SIMVASTATIN
     Indication: BLOOD CHOLESTEROL INCREASED
     Dosage: 10 MG, UNKNOWN
     Route: 048
     Dates: start: 20100501, end: 20150801
  2. LOSARTAN POTASSIUM (UNKNOWN) [Suspect]
     Active Substance: LOSARTAN POTASSIUM
     Indication: HYPERTENSION
     Dosage: 50 MG, UNKNOWN
     Route: 048
     Dates: start: 20100512, end: 20150801
  3. METFORMIN [Concomitant]
     Active Substance: METFORMIN HYDROCHLORIDE
     Indication: DIABETES MELLITUS
     Dosage: 1000 MG, DAILY
     Route: 065

REACTIONS (2)
  - Arrhythmia [Recovered/Resolved with Sequelae]
  - Palpitations [Recovered/Resolved with Sequelae]

NARRATIVE: CASE EVENT DATE: 20150501
